FAERS Safety Report 21805267 (Version 2)
Quarter: 2023Q1

REPORT INFORMATION
  Report Type: Spontaneous
  Country: ES (occurrence: ES)
  Receive Date: 20230102
  Receipt Date: 20230113
  Transmission Date: 20230417
  Serious: Yes (Other)
  Sender: FDA-Public Use
  Company Number: ES-AUROBINDO-AUR-APL-2022-056374

PATIENT
  Age: 15 Year
  Sex: Male

DRUGS (3)
  1. ATOMOXETINE [Interacting]
     Active Substance: ATOMOXETINE
     Indication: Attention deficit hyperactivity disorder
     Dosage: 40 MILLIGRAM, ONCE A DAY (FOR 7 MONTHS)
     Route: 048
  2. PSEUDOEPHEDRINE [Interacting]
     Active Substance: PSEUDOEPHEDRINE
     Indication: Nasal congestion
     Dosage: 10 BEATS/DAY
     Route: 065
  3. FLUTICASONE [Interacting]
     Active Substance: FLUTICASONE
     Indication: Nasal congestion
     Dosage: 10 BEATS/DAY
     Route: 065

REACTIONS (4)
  - Hypertensive crisis [Unknown]
  - Drug interaction [Unknown]
  - Heart rate increased [Unknown]
  - Tremor [Unknown]
